FAERS Safety Report 8144931-8 (Version None)
Quarter: 2012Q1

REPORT INFORMATION
  Report Type: 
  Country: None (occurrence: None)
  Receive Date: 20120217
  Receipt Date: 20120209
  Transmission Date: 20120608
  Serious: Yes (Life-Threatening, Hospitalization, Other)
  Sender: FDA-Public Use
  Company Number: CA-MERCK-1202USA01508

PATIENT
  Age: 56 Year
  Sex: Female

DRUGS (8)
  1. ACETAMINOPHEN [Concomitant]
     Route: 065
  2. ATENOLOL [Concomitant]
     Route: 065
  3. CEFTRIAXONE SODIUM [Concomitant]
     Route: 065
  4. AMLODIPINE [Concomitant]
     Route: 065
  5. ATORVASTATIN [Concomitant]
     Route: 065
  6. CYCLOSPORINE [Concomitant]
     Route: 065
  7. FOSAMAX [Suspect]
     Route: 048
     Dates: end: 20111201
  8. GABAPENTIN [Concomitant]
     Route: 065

REACTIONS (4)
  - FALL [None]
  - PULMONARY EMBOLISM [None]
  - FEMUR FRACTURE [None]
  - LIMB DISCOMFORT [None]
